FAERS Safety Report 13427261 (Version 1)
Quarter: 2017Q2

REPORT INFORMATION
  Report Type: Report from Study
  Country: BR (occurrence: BR)
  Receive Date: 20170411
  Receipt Date: 20170411
  Transmission Date: 20170830
  Serious: Yes (Other)
  Sender: FDA-Public Use
  Company Number: PHHY2017BR054305

PATIENT
  Sex: Female
  Weight: 72 kg

DRUGS (2)
  1. DIOVAN HCT [Suspect]
     Active Substance: HYDROCHLOROTHIAZIDE\VALSARTAN
     Indication: HYPERTENSION
     Dosage: 1 DF (VALSARTAN 160 MG, HYDROCHLOROTHIAZIDE 12.5 MG), QD
     Route: 065
  2. DIOVAN HCT [Suspect]
     Active Substance: HYDROCHLOROTHIAZIDE\VALSARTAN
     Dosage: 0.5 DF (VALSARTAN 160 MG, HYDROCHLOROTHIAZIDE 12.5 MG), QD
     Route: 065

REACTIONS (5)
  - Blood pressure increased [Recovering/Resolving]
  - Gallbladder disorder [Recovering/Resolving]
  - Wrong technique in product usage process [Unknown]
  - Weight increased [Unknown]
  - Weight decreased [Recovering/Resolving]
